FAERS Safety Report 9409943 (Version 1)
Quarter: 2013Q3

REPORT INFORMATION
  Report Type: Spontaneous
  Country: ES (occurrence: ES)
  Receive Date: 20130719
  Receipt Date: 20130719
  Transmission Date: 20140515
  Serious: Yes (Other)
  Sender: FDA-Public Use
  Company Number: ES-SANOFI-AVENTIS-2013SA071371

PATIENT
  Age: 70 Year
  Sex: Female

DRUGS (7)
  1. MULTAQ [Suspect]
     Indication: ARRHYTHMIA
     Dosage: 1 TAB. IN THE MORNING AND 1 TAB. AT NIGHT DOSE:1 UNIT(S)
     Route: 065
     Dates: start: 2013
  2. SINOGAN [Concomitant]
     Indication: ANXIETY
     Dosage: 2/3 DROPS/DAY, THEN 2/3 DROPS/TWICE A DAY?ON 12-JUL-2013; 1 DROPS
  3. ADIRO [Concomitant]
     Indication: PRODUCT USED FOR UNKNOWN INDICATION
  4. IDEOS [Concomitant]
     Indication: BONE DISORDER
  5. VITAMINS NOS [Concomitant]
     Indication: NUTRITIONAL SUPPLEMENTATION
  6. PANTOPRAZOLE [Concomitant]
     Indication: PRODUCT USED FOR UNKNOWN INDICATION
  7. TRANXILIUM [Concomitant]
     Indication: ANXIETY

REACTIONS (3)
  - Polyuria [Not Recovered/Not Resolved]
  - Oropharyngeal discomfort [Not Recovered/Not Resolved]
  - Fatigue [Not Recovered/Not Resolved]
